FAERS Safety Report 20525043 (Version 1)
Quarter: 2022Q1

REPORT INFORMATION
  Report Type: Spontaneous
  Country: US (occurrence: None)
  Receive Date: 20220225
  Receipt Date: 20220225
  Transmission Date: 20220423
  Serious: No
  Sender: FDA-Public Use
  Company Number: None

PATIENT
  Sex: Female

DRUGS (1)
  1. PROLIA [Suspect]
     Active Substance: DENOSUMAB
     Indication: Osteoporosis
     Dosage: OTHER FREQUENCY : EVERY 6 MONTHS;?
     Route: 058
     Dates: start: 20180218, end: 20220225

REACTIONS (6)
  - Pain in extremity [None]
  - Injection site pain [None]
  - Urinary tract infection [None]
  - Dermatitis [None]
  - Pain in jaw [None]
  - Sinus disorder [None]
